FAERS Safety Report 12098130 (Version 1)
Quarter: 2016Q1

REPORT INFORMATION
  Report Type: Spontaneous
  Country: IR (occurrence: IR)
  Receive Date: 20160222
  Receipt Date: 20160222
  Transmission Date: 20160526
  Serious: Yes (Death, Life-Threatening, Other)
  Sender: FDA-Public Use
  Company Number: IR-ROXANE LABORATORIES, INC.-2016-RO-00320RO

PATIENT
  Age: 6 Year
  Sex: Male

DRUGS (1)
  1. METHADONE HCL ORAL CONCENTRATE USP, 10 MG/ML (CHERRY) [Suspect]
     Active Substance: METHADONE HYDROCHLORIDE
     Indication: PRODUCT USED FOR UNKNOWN INDICATION
     Dosage: 100 MG
     Route: 065

REACTIONS (4)
  - Toxicity to various agents [Fatal]
  - Cerebral haemorrhage [Unknown]
  - Pneumonia [Unknown]
  - Brain death [Fatal]
